FAERS Safety Report 7501693-2 (Version None)
Quarter: 2011Q2

REPORT INFORMATION
  Report Type: 
  Country: None (occurrence: None)
  Receive Date: 20110525
  Receipt Date: 20110516
  Transmission Date: 20111010
  Serious: Yes (Other)
  Sender: FDA-Public Use
  Company Number: US-BRISTOL-MYERS SQUIBB COMPANY-15748395

PATIENT
  Age: 55 Year
  Sex: Male
  Weight: 84 kg

DRUGS (13)
  1. COREG [Concomitant]
  2. LIPITOR [Concomitant]
  3. DOMPERIDONE [Concomitant]
     Dosage: WITH EVERY MEAL
  4. REMERON [Concomitant]
  5. JANUMET [Concomitant]
     Dosage: 1DF=50/100 MG
  6. NEXIUM [Concomitant]
  7. COUMADIN [Suspect]
     Indication: CEREBROVASCULAR ACCIDENT
     Dates: start: 20101001
  8. ALTACE [Concomitant]
  9. TRICOR [Concomitant]
  10. ZOLOFT [Concomitant]
  11. TOPAMAX [Concomitant]
  12. ASPIRIN [Concomitant]
  13. PLAVIX [Concomitant]

REACTIONS (2)
  - NERVE COMPRESSION [None]
  - CATHETERISATION CARDIAC [None]
